FAERS Safety Report 17203460 (Version 2)
Quarter: 2020Q2

REPORT INFORMATION
  Report Type: Spontaneous
  Country: US (occurrence: US)
  Receive Date: 20191226
  Receipt Date: 20200526
  Transmission Date: 20200713
  Serious: Yes (Hospitalization)
  Sender: FDA-Public Use
  Company Number: US-JNJFOC-20191242979

PATIENT
  Sex: Male
  Weight: 136.2 kg

DRUGS (1)
  1. REMICADE [Suspect]
     Active Substance: INFLIXIMAB
     Indication: PSORIATIC ARTHROPATHY
     Route: 042
     Dates: start: 20170623, end: 2018

REACTIONS (7)
  - Chest pain [Unknown]
  - Vision blurred [Unknown]
  - Dehydration [Unknown]
  - Dizziness [Unknown]
  - Hypersensitivity [Unknown]
  - Malaise [Unknown]
  - Adverse event [Unknown]

NARRATIVE: CASE EVENT DATE: 2017
